FAERS Safety Report 7618956-2 (Version None)
Quarter: 2011Q3

REPORT INFORMATION
  Report Type: 
  Country: None (occurrence: None)
  Receive Date: 20110718
  Receipt Date: 20110711
  Transmission Date: 20111222
  Serious: Yes (Hospitalization, Other)
  Sender: FDA-Public Use
  Company Number: FR-PFIZER INC-2011008470

PATIENT
  Age: 29 Year
  Sex: Female

DRUGS (3)
  1. SULFASALAZINE [Suspect]
     Dosage: UNK
     Route: 048
     Dates: start: 20100228, end: 20100316
  2. MESALAMINE [Suspect]
     Indication: COLITIS ULCERATIVE
     Dosage: 2 DF, 1X/DAY
     Route: 048
     Dates: start: 20021101, end: 20100320
  3. PREDNISOLONE [Concomitant]
     Dosage: 40 MG, 1X/DAY
     Dates: start: 20100228

REACTIONS (4)
  - ARTHRALGIA [None]
  - ALLERGIC GRANULOMATOUS ANGIITIS [None]
  - MYALGIA [None]
  - GAIT DISTURBANCE [None]
